FAERS Safety Report 4516449-2 (Version None)
Quarter: 2004Q4

REPORT INFORMATION
  Report Type: 
  Country: None (occurrence: None)
  Receive Date: 20041202
  Receipt Date: 20040823
  Transmission Date: 20050328
  Serious: No
  Sender: FDA-Public Use
  Company Number: US-GLAXOSMITHKLINE-A0523044A

PATIENT
  Age: 52 Year
  Sex: Female
  Weight: 55.9 kg

DRUGS (4)
  1. AUGMENTIN '125' [Suspect]
     Indication: ACUTE SINUSITIS
     Dosage: 2TAB TWICE PER DAY
     Route: 048
     Dates: start: 20040820, end: 20040822
  2. ALLEGRA [Concomitant]
     Dosage: 60MG VARIABLE DOSE
     Route: 048
     Dates: start: 20040707
  3. SYNTHROID [Concomitant]
     Dosage: 50MCG PER DAY
     Route: 048
  4. NASACORT AQ [Concomitant]
     Indication: DRUG USE FOR UNKNOWN INDICATION
     Dosage: 2SPR TWICE PER DAY
     Route: 045
     Dates: start: 20040816

REACTIONS (4)
  - DIARRHOEA [None]
  - DYSPHAGIA [None]
  - ERUCTATION [None]
  - FEELING ABNORMAL [None]
